FAERS Safety Report 11009046 (Version 2)
Quarter: 2015Q2

REPORT INFORMATION
  Report Type: Spontaneous
  Country: DE (occurrence: DE)
  Receive Date: 20150410
  Receipt Date: 20150417
  Transmission Date: 20150821
  Serious: Yes (Hospitalization)
  Sender: FDA-Public Use
  Company Number: DE-UCBSA-2015010759

PATIENT
  Age: 19 Year
  Sex: Male
  Weight: 69 kg

DRUGS (2)
  1. VIMPAT [Suspect]
     Active Substance: LACOSAMIDE
     Indication: PRODUCT USED FOR UNKNOWN INDICATION
     Dosage: 600 MG, (TOOK THE WHOLE DAILY DOSAGE IN THE MORNING)
     Route: 048
     Dates: start: 20150327, end: 20150327
  2. LAMICTAL [Suspect]
     Active Substance: LAMOTRIGINE
     Indication: PRODUCT USED FOR UNKNOWN INDICATION
     Dosage: 1000 MG,(TOOK THE WHOLE DAILY DOSAGE IN THE MORNING)
     Route: 048
     Dates: start: 20150327, end: 20150327

REACTIONS (10)
  - Nausea [Recovered/Resolved]
  - Accidental overdose [Unknown]
  - Off label use [Unknown]
  - Headache [Recovered/Resolved]
  - Vomiting [Recovered/Resolved]
  - Visual impairment [Recovered/Resolved]
  - Pyrexia [Recovered/Resolved]
  - Dizziness [Recovered/Resolved]
  - Diarrhoea [Recovered/Resolved]
  - Accidental exposure to product [Unknown]

NARRATIVE: CASE EVENT DATE: 2015
